FAERS Safety Report 4704236-1 (Version None)
Quarter: 2005Q2

REPORT INFORMATION
  Report Type: 
  Country: None (occurrence: None)
  Receive Date: 20050628
  Receipt Date: 20050615
  Transmission Date: 20051028
  Serious: Yes (Hospitalization)
  Sender: FDA-Public Use
  Company Number: 2005089550

PATIENT
  Sex: Male
  Weight: 95.2554 kg

DRUGS (1)
  1. DEPO-TESTOSTERONE [Suspect]
     Indication: HYPOGONADISM
     Dosage: 200 MG, CYCLIC

REACTIONS (4)
  - BLOOD TESTOSTERONE DECREASED [None]
  - MUSCULOSKELETAL DISCOMFORT [None]
  - POLYCYTHAEMIA [None]
  - SPINAL FUSION SURGERY [None]
